FAERS Safety Report 13451379 (Version 1)
Quarter: 2017Q2

REPORT INFORMATION
  Report Type: Spontaneous
  Country: US (occurrence: US)
  Receive Date: 20170417
  Receipt Date: 20170417
  Transmission Date: 20170830
  Serious: Yes (Other)
  Sender: FDA-Public Use
  Company Number: None

PATIENT
  Age: 3 Month
  Sex: Female
  Weight: 30.15 kg

DRUGS (2)
  1. CHILDREN VITAMIN [Concomitant]
  2. BABY TEETHING (HYLAND HOMEOPATHIC) [Suspect]
     Active Substance: HOMEOPATHICS
     Indication: TEETHING
     Route: 060
     Dates: start: 20080415, end: 20080720

REACTIONS (1)
  - Seizure [None]

NARRATIVE: CASE EVENT DATE: 20080415
